FAERS Safety Report 14626083 (Version 3)
Quarter: 2018Q1

REPORT INFORMATION
  Report Type: Spontaneous
  Country: US (occurrence: US)
  Receive Date: 20180312
  Receipt Date: 20180322
  Transmission Date: 20180509
  Serious: Yes (Hospitalization, Other)
  Sender: FDA-Public Use
  Company Number: US-HORIZON-PRO-0052-2018

PATIENT
  Age: 3 Year
  Sex: Female

DRUGS (4)
  1. PROCYSBI [Suspect]
     Active Substance: CYSTEAMINE BITARTRATE
     Indication: CYSTINOSIS
     Dosage: 75 MG EVERY 12 HOURS
     Dates: start: 20180223
  2. OMEPRAZOLE. [Concomitant]
     Active Substance: OMEPRAZOLE
  3. CYSTEINE EYE DROP [Concomitant]
  4. POTASSIUM SUPPLEMENTS [Concomitant]

REACTIONS (6)
  - Gastrostomy [Recovered/Resolved]
  - Failure to thrive [Unknown]
  - Device occlusion [Unknown]
  - Selective eating disorder [Not Recovered/Not Resolved]
  - Refusal of treatment by patient [Not Recovered/Not Resolved]
  - Drug dose omission [Not Recovered/Not Resolved]

NARRATIVE: CASE EVENT DATE: 20180305
